FAERS Safety Report 19903149 (Version 1)
Quarter: 2021Q4

REPORT INFORMATION
  Report Type: Spontaneous
  Country: JP (occurrence: JP)
  Receive Date: 20211001
  Receipt Date: 20211001
  Transmission Date: 20220304
  Serious: Yes (Other)
  Sender: FDA-Public Use
  Company Number: JP-SANIK-2021SA319366AA

PATIENT
  Age: 73 Year
  Sex: Male

DRUGS (1)
  1. CLOPIDOGREL BISULFATE [Suspect]
     Active Substance: CLOPIDOGREL BISULFATE
     Indication: Product used for unknown indication
     Dosage: UNK
     Route: 048
     Dates: start: 201908, end: 201908

REACTIONS (4)
  - Somatic dysfunction [Unknown]
  - Mental impairment [Unknown]
  - Language disorder [Unknown]
  - Cerebral haemorrhage [Unknown]
